FAERS Safety Report 8328518-X (Version None)
Quarter: 2012Q2

REPORT INFORMATION
  Report Type: 
  Country: None (occurrence: None)
  Receive Date: 20120502
  Receipt Date: 20120426
  Transmission Date: 20120825
  Serious: Yes (Hospitalization)
  Sender: FDA-Public Use
  Company Number: JP-PFIZER INC-2011112955

PATIENT
  Age: 69 Year
  Sex: Male
  Weight: 61 kg

DRUGS (14)
  1. VECTIBIX [Suspect]
     Dosage: UNK
     Route: 041
     Dates: start: 20110222, end: 20110222
  2. IRINOTECAN HCL [Suspect]
     Dosage: UNK
     Route: 041
     Dates: start: 20110208, end: 20110208
  3. FLUOROURACIL [Suspect]
     Dosage: UNK
     Route: 041
     Dates: start: 20110308, end: 20110308
  4. FLUOROURACIL [Suspect]
     Dosage: UNK
     Route: 041
     Dates: start: 20110208, end: 20110208
  5. VECTIBIX [Suspect]
     Indication: COLORECTAL CANCER
     Dosage: 380 MG/BODY
     Route: 041
     Dates: start: 20110125, end: 20110125
  6. VECTIBIX [Suspect]
     Dosage: UNK
     Route: 041
     Dates: start: 20110308, end: 20110308
  7. CALCIUM LEVOFOLINATE [Concomitant]
     Indication: COLORECTAL CANCER
     Dosage: 340 MG/BODY (202.4 MG/M2)
     Route: 041
     Dates: start: 20110125, end: 20110308
  8. CALCIUM LEVOFOLINATE [Concomitant]
     Dosage: 336 MG/BODY (200 MG/M2)
     Route: 041
     Dates: start: 20110222, end: 20110308
  9. FLUOROURACIL [Suspect]
     Indication: COLORECTAL CANCER
     Dosage: 4000 MG/BODY/D1-2 (2381 MG/M2/D1-2)
     Route: 041
     Dates: start: 20110125, end: 20110125
  10. FLUOROURACIL [Suspect]
     Dosage: 4032 MG/BODY/D1-2 (2400 MG/M2/D1-2)
     Route: 041
     Dates: start: 20110222, end: 20110222
  11. IRINOTECAN HCL [Suspect]
     Indication: COLORECTAL CANCER
     Dosage: 200 MG/BODY (119 MG/M2)
     Route: 041
     Dates: start: 20110125, end: 20110125
  12. IRINOTECAN HCL [Suspect]
     Dosage: 201.6 MG/BODY (120 MG/M2)
     Route: 041
     Dates: start: 20110222, end: 20110222
  13. VECTIBIX [Suspect]
     Dosage: UNK
     Route: 041
     Dates: start: 20110208, end: 20110208
  14. IRINOTECAN HCL [Suspect]
     Dosage: UNK
     Route: 041
     Dates: start: 20110308, end: 20110308

REACTIONS (1)
  - HEPATIC ENCEPHALOPATHY [None]
